FAERS Safety Report 18605434 (Version 1)
Quarter: 2020Q4

REPORT INFORMATION
  Report Type: Spontaneous
  Country: JP (occurrence: JP)
  Receive Date: 20201211
  Receipt Date: 20201211
  Transmission Date: 20210114
  Serious: Yes (Other)
  Sender: FDA-Public Use
  Company Number: NVSC2020JP326822

PATIENT
  Age: 80 Year
  Sex: Female

DRUGS (1)
  1. RIVASTACH [Suspect]
     Active Substance: RIVASTIGMINE
     Indication: PARKINSON^S DISEASE
     Dosage: 0.5 DF (INCLUDING POULTICE)
     Route: 062

REACTIONS (8)
  - Haemorrhage [Unknown]
  - Skin laceration [Unknown]
  - Fall [Unknown]
  - Product prescribing error [Unknown]
  - Suicidal ideation [Unknown]
  - Negative thoughts [Unknown]
  - Memory impairment [Unknown]
  - Off label use [Unknown]
